FAERS Safety Report 7071269-2 (Version None)
Quarter: 2010Q4

REPORT INFORMATION
  Report Type: 
  Country: None (occurrence: None)
  Receive Date: 20101029
  Receipt Date: 20101025
  Transmission Date: 20110411
  Serious: No
  Sender: FDA-Public Use
  Company Number: US-CEPHALON-2010005602

PATIENT
  Sex: Male

DRUGS (2)
  1. FENTORA [Suspect]
     Indication: BACK PAIN
     Route: 002
  2. FENTANYL CITRATE [Suspect]
     Indication: BACK PAIN
     Route: 002

REACTIONS (2)
  - DRUG DISPENSING ERROR [None]
  - DRUG PRESCRIBING ERROR [None]
